FAERS Safety Report 5609434-0 (Version None)
Quarter: 2008Q1

REPORT INFORMATION
  Report Type: 
  Country: None (occurrence: None)
  Receive Date: 20080131
  Receipt Date: 20080124
  Transmission Date: 20080703
  Serious: Yes (Other)
  Sender: FDA-Public Use
  Company Number: US-SANOFI-SYNTHELABO-A03200800272

PATIENT
  Sex: Male

DRUGS (1)
  1. PLAVIX [Suspect]
     Indication: ANTICOAGULANT THERAPY
     Route: 048
     Dates: end: 20070701

REACTIONS (3)
  - BACK PAIN [None]
  - CHEST PAIN [None]
  - PULMONARY EMBOLISM [None]
